FAERS Safety Report 14019187 (Version 2)
Quarter: 2017Q4

REPORT INFORMATION
  Report Type: Spontaneous
  Country: ES (occurrence: ES)
  Receive Date: 20170928
  Receipt Date: 20171114
  Transmission Date: 20180321
  Serious: Yes (Hospitalization)
  Sender: FDA-Public Use
  Company Number: ES-B.I. PHARMACEUTICALS,INC./RIDGEFIELD-2017-BI-051980

PATIENT
  Age: 86 Year
  Sex: Female
  Weight: 80 kg

DRUGS (3)
  1. FUROSEMIDE. [Concomitant]
     Active Substance: FUROSEMIDE
     Indication: PRODUCT USED FOR UNKNOWN INDICATION
     Route: 065
  2. PRADAXA [Suspect]
     Active Substance: DABIGATRAN ETEXILATE MESYLATE
     Indication: ATRIAL FIBRILLATION
     Dosage: DOSE : 110; DAILY DOSE: 220
     Route: 065
     Dates: start: 201606, end: 20170916
  3. MANIDON [Concomitant]
     Active Substance: VERAPAMIL HYDROCHLORIDE
     Indication: PRODUCT USED FOR UNKNOWN INDICATION
     Dosage: DOSE:180
     Route: 065

REACTIONS (4)
  - Melaena [Recovered/Resolved]
  - Melaena [Recovered/Resolved]
  - Coagulation test abnormal [Recovered/Resolved]
  - Coagulation test abnormal [Recovered/Resolved]

NARRATIVE: CASE EVENT DATE: 20170917
